FAERS Safety Report 16983787 (Version 2)
Quarter: 2019Q4

REPORT INFORMATION
  Report Type: Spontaneous
  Country: US (occurrence: US)
  Receive Date: 20191101
  Receipt Date: 20191115
  Transmission Date: 20200122
  Serious: Yes (Hospitalization)
  Sender: FDA-Public Use
  Company Number: US-ZYDUS-042758

PATIENT
  Age: 76 Year
  Sex: Male

DRUGS (17)
  1. TRAZODONE/TRAZODONE HYDROCHLORIDE [Concomitant]
     Indication: RAPID EYE MOVEMENT SLEEP BEHAVIOUR DISORDER
  2. RIVASTIGMINE/RIVASTIGMINE TARTRATE [Concomitant]
     Indication: DEMENTIA WITH LEWY BODIES
  3. QUETIAPINE/QUETIAPINE FUMARATE [Suspect]
     Active Substance: QUETIAPINE FUMARATE
     Indication: DEMENTIA WITH LEWY BODIES
  4. METOPROLOL. [Concomitant]
     Active Substance: METOPROLOL
  5. ZIPRASIDONE/ZIPRASIDONE HYDROCHLORIDE/ZIPRASIDONE MESILATE [Suspect]
     Active Substance: ZIPRASIDONE HYDROCHLORIDE\ZIPRASIDONE MESYLATE
     Indication: DEMENTIA WITH LEWY BODIES
  6. QUETIAPINE/QUETIAPINE FUMARATE [Suspect]
     Active Substance: QUETIAPINE FUMARATE
     Indication: DEMENTIA WITH LEWY BODIES
     Dosage: QUETIAPINE DOSE INCREASED TO 100MG DAILY PLUS 25MG AS NECESSARY
  7. QUETIAPINE/QUETIAPINE FUMARATE [Suspect]
     Active Substance: QUETIAPINE FUMARATE
     Indication: DEMENTIA WITH LEWY BODIES
  8. HALOPERIDOL. [Suspect]
     Active Substance: HALOPERIDOL
     Indication: DEMENTIA WITH LEWY BODIES
     Dosage: ON HOSPITAL DAY (HD) 4, HD 6 AND HD 9
     Route: 030
  9. OLANZAPINE. [Suspect]
     Active Substance: OLANZAPINE
     Indication: DEMENTIA WITH LEWY BODIES
     Route: 030
  10. MELATONIN [Concomitant]
     Active Substance: MELATONIN
     Indication: RAPID EYE MOVEMENT SLEEP BEHAVIOUR DISORDER
  11. ATORVASTATIN/ATORVASTATIN CALCIUM [Concomitant]
  12. QUETIAPINE/QUETIAPINE FUMARATE [Suspect]
     Active Substance: QUETIAPINE FUMARATE
     Indication: DEMENTIA WITH LEWY BODIES
  13. FINASTERIDE. [Concomitant]
     Active Substance: FINASTERIDE
  14. LISINOPRIL/LISINOPRIL DIHYDRATE [Concomitant]
  15. VITAMINS NOS [Suspect]
     Active Substance: VITAMINS
  16. ACETYLSALICYLIC ACID [Concomitant]
     Active Substance: ASPIRIN
  17. RIVASTIGMINE/RIVASTIGMINE TARTRATE [Concomitant]
     Indication: DEMENTIA WITH LEWY BODIES

REACTIONS (2)
  - Confusional state [Recovering/Resolving]
  - Agitation [Recovering/Resolving]
